FAERS Safety Report 23183384 (Version 2)
Quarter: 2024Q1

REPORT INFORMATION
  Report Type: Spontaneous
  Country: DE (occurrence: DE)
  Receive Date: 20231114
  Receipt Date: 20240202
  Transmission Date: 20240410
  Serious: Yes (Life-Threatening, Hospitalization)
  Sender: FDA-Public Use
  Company Number: DE-AMERICAN REGENT INC-2023002595

PATIENT
  Age: 53 Year
  Sex: Male

DRUGS (8)
  1. FERINJECT [Suspect]
     Active Substance: FERRIC CARBOXYMALTOSE
     Indication: Iron deficiency anaemia
     Dosage: 500 MG (10 ML), DILUTED IN 250 UNIT OF UNSPECIFIED DILUENT (TOOK FERINJECT IRREGULARLY)
     Dates: start: 20170104, end: 20231017
  2. MARCUMAR [Concomitant]
     Active Substance: PHENPROCOUMON
     Indication: Pulmonary embolism
     Dosage: ACCORDING TO INR; P.O.
     Route: 048
  3. RAMIPRIL [Concomitant]
     Active Substance: RAMIPRIL
     Indication: Hypertension
     Dosage: 5 MILLIGRAM (P.O.)
     Route: 048
  4. METOPROLOL SUCCINATE [Concomitant]
     Active Substance: METOPROLOL SUCCINATE
     Indication: Hypertension
     Dosage: 95 MILLIGRAM (P.O.)
     Route: 048
  5. TORSEMIDE [Concomitant]
     Active Substance: TORSEMIDE
     Indication: Product used for unknown indication
     Dosage: 2.5 MILLIGRAM (P.O.)
     Route: 048
  6. HYDROCORTISONE [Concomitant]
     Active Substance: HYDROCORTISONE
     Indication: Polyglandular autoimmune syndrome type I
     Dosage: 10 MILLIGRAM (P.O.)
     Route: 048
  7. SIMVASTATIN [Concomitant]
     Active Substance: SIMVASTATIN
     Indication: Hyperlipidaemia
     Dosage: 20 MILLIGRAM (PER ORAL)
     Route: 048
  8. CHOLECALCIFEROL [Concomitant]
     Active Substance: CHOLECALCIFEROL
     Indication: Product used for unknown indication
     Dosage: 1000 IU
     Route: 065

REACTIONS (2)
  - Syncope [Unknown]
  - General physical health deterioration [Unknown]

NARRATIVE: CASE EVENT DATE: 20231017
